FAERS Safety Report 18324405 (Version 1)
Quarter: 2020Q3

REPORT INFORMATION
  Report Type: Spontaneous
  Country: US (occurrence: US)
  Receive Date: 20200929
  Receipt Date: 20200929
  Transmission Date: 20201103
  Serious: Yes (Death)
  Sender: FDA-Public Use
  Company Number: None

PATIENT
  Age: 93 Year
  Sex: Male
  Weight: 83.91 kg

DRUGS (15)
  1. TAMSULOSIN [Concomitant]
     Active Substance: TAMSULOSIN
  2. CENTRUM SILVER [Concomitant]
     Active Substance: MINERALS\VITAMINS
  3. GLIMEPIRIDE. [Concomitant]
     Active Substance: GLIMEPIRIDE
  4. FERROUS SULFATE. [Concomitant]
     Active Substance: FERROUS SULFATE
  5. ABIRATERONE. [Suspect]
     Active Substance: ABIRATERONE ACETATE
     Indication: PROSTATE CANCER
     Route: 048
     Dates: start: 20200831, end: 20200929
  6. LUPRON DEPOT (3?MONTH) [Concomitant]
  7. METOPROLOL. [Concomitant]
     Active Substance: METOPROLOL
  8. ASPIRIN. [Concomitant]
     Active Substance: ASPIRIN
  9. BICALUTAMIDE. [Concomitant]
     Active Substance: BICALUTAMIDE
  10. CASODEX [Concomitant]
     Active Substance: BICALUTAMIDE
  11. PREDNISONE. [Suspect]
     Active Substance: PREDNISONE
     Indication: SUPPORTIVE CARE
     Route: 048
     Dates: start: 20200902, end: 20200929
  12. ATORVASTATIN [Concomitant]
     Active Substance: ATORVASTATIN
  13. FINASTERIDE. [Concomitant]
     Active Substance: FINASTERIDE
  14. NEPHRO VITE RX [Concomitant]
     Active Substance: ASCORBIC ACID\BIOTIN\CALCIUM PANTOTHENATE\CYANOCOBALAMIN\FOLIC ACID\NIACINAMIDE\PYRIDOXINE HYDROCHLORIDE\RIBOFLAVIN\THIAMINE MONONITRATE
  15. NIFEDIPINE. [Concomitant]
     Active Substance: NIFEDIPINE

REACTIONS (1)
  - Death [None]

NARRATIVE: CASE EVENT DATE: 20200929
